FAERS Safety Report 11099864 (Version 1)
Quarter: 2015Q2

REPORT INFORMATION
  Report Type: Spontaneous
  Country: US (occurrence: US)
  Receive Date: 20150508
  Receipt Date: 20150508
  Transmission Date: 20150821
  Serious: Yes (Hospitalization)
  Sender: FDA-Public Use
  Company Number: US-NOVOPROD-448546

PATIENT
  Age: 57 Year
  Sex: Female

DRUGS (1)
  1. NOVOLOG MIX 70/30 [Suspect]
     Active Substance: INSULIN ASPART
     Indication: TYPE 2 DIABETES MELLITUS
     Dosage: 30 UNITS IN THE AM AND 20 UNITS IN THE PM
     Route: 058
     Dates: start: 201501

REACTIONS (1)
  - Pneumonia [Recovered/Resolved]

NARRATIVE: CASE EVENT DATE: 20150401
